FAERS Safety Report 20319381 (Version 2)
Quarter: 2022Q1

REPORT INFORMATION
  Report Type: Spontaneous
  Country: US (occurrence: US)
  Receive Date: 20220110
  Receipt Date: 20220201
  Transmission Date: 20220423
  Serious: Yes (Death, Hospitalization, Other)
  Sender: FDA-Public Use
  Company Number: US-GILEAD-2022-0564555

PATIENT
  Age: 34 Year
  Sex: Female
  Weight: 94.7 kg

DRUGS (18)
  1. TECARTUS [Suspect]
     Active Substance: BREXUCABTAGENE AUTOLEUCEL
     Indication: B-cell type acute leukaemia
     Dosage: 68 ML
     Route: 042
     Dates: start: 20211105, end: 20211105
  2. FLUDARABINE [Concomitant]
     Active Substance: FLUDARABINE PHOSPHATE
     Indication: Bone marrow conditioning regimen
     Dosage: UNK
     Dates: start: 20211101
  3. CYCLOPHOSPHAMIDE [Concomitant]
     Active Substance: CYCLOPHOSPHAMIDE
     Indication: Bone marrow conditioning regimen
     Dosage: UNK
     Dates: start: 20211101
  4. RASBURICASE [Concomitant]
     Active Substance: RASBURICASE
     Dosage: UNK
     Dates: start: 20211101
  5. ANAKINRA [Concomitant]
     Active Substance: ANAKINRA
     Dosage: 100 MG
     Route: 058
     Dates: start: 20211105, end: 20211116
  6. CRESEMBA [Concomitant]
     Active Substance: ISAVUCONAZONIUM SULFATE
  7. AUGMENTIN [Concomitant]
     Active Substance: AMOXICILLIN\CLAVULANATE POTASSIUM
  8. KEPPRA [Concomitant]
     Active Substance: LEVETIRACETAM
     Dosage: 500 MG, BID, CONTINUED UNTIL DAY +30
     Route: 048
     Dates: start: 20211105, end: 20211118
  9. ACYCLOVIR ALPHARMA [ACICLOVIR] [Concomitant]
  10. IPRATROPIUM [Concomitant]
     Active Substance: IPRATROPIUM
  11. DIPHENHYDRAMINE;LIDOCAINE [Concomitant]
  12. VENLAFAXINE [Concomitant]
     Active Substance: VENLAFAXINE HYDROCHLORIDE
  13. PANTOPRAZOLE [Concomitant]
     Active Substance: PANTOPRAZOLE
  14. POTASSIUM CHLORIDE [Concomitant]
     Active Substance: POTASSIUM CHLORIDE
  15. MELATONIN [Concomitant]
     Active Substance: MELATONIN
  16. ATIVAN [Concomitant]
     Active Substance: LORAZEPAM
  17. OLANZAPINE [Concomitant]
     Active Substance: OLANZAPINE
  18. ALLOPURINOL [Concomitant]
     Active Substance: ALLOPURINOL

REACTIONS (4)
  - Mucormycosis [Fatal]
  - Immune effector cell-associated neurotoxicity syndrome [Recovered/Resolved]
  - Cytokine release syndrome [Recovered/Resolved]
  - Cytokine release syndrome [Recovered/Resolved]

NARRATIVE: CASE EVENT DATE: 20211105
